FAERS Safety Report 6410841-7 (Version None)
Quarter: 2009Q4

REPORT INFORMATION
  Report Type: 
  Country: None (occurrence: None)
  Receive Date: 20091020
  Receipt Date: 20091020
  Transmission Date: 20100525
  Serious: Yes (Hospitalization)
  Sender: FDA-Public Use
  Company Number: None

PATIENT
  Age: 40 Year
  Sex: Male

DRUGS (1)
  1. LISINOPRIL [Suspect]
     Indication: HYPERTENSION
     Dates: start: 20091001, end: 20091008

REACTIONS (3)
  - CERUMEN IMPACTION [None]
  - DRUG HYPERSENSITIVITY [None]
  - NASAL SEPTUM DEVIATION [None]
